FAERS Safety Report 4398129-X (Version None)
Quarter: 2004Q3

REPORT INFORMATION
  Report Type: 
  Country: None (occurrence: None)
  Receive Date: 20040715
  Receipt Date: 20040630
  Transmission Date: 20050211
  Serious: Yes (Other)
  Sender: FDA-Public Use
  Company Number: 200416868GDDC

PATIENT
  Age: 17 Year
  Sex: Female

DRUGS (3)
  1. ARAVA [Suspect]
     Indication: JUVENILE ARTHRITIS
     Route: 048
     Dates: start: 20020501, end: 20040601
  2. DELTACORTRIL [Concomitant]
     Indication: JUVENILE ARTHRITIS
     Route: 048
     Dates: start: 19940101, end: 20040101
  3. ENDOL [Concomitant]
     Indication: JUVENILE ARTHRITIS
     Route: 048
     Dates: start: 20020101, end: 20040101

REACTIONS (1)
  - HEPATITIS B [None]
